FAERS Safety Report 23632924 (Version 1)
Quarter: 2024Q1

REPORT INFORMATION
  Report Type: Other
  Country: JP (occurrence: JP)
  Receive Date: 20240314
  Receipt Date: 20240314
  Transmission Date: 20240409
  Serious: Yes (Other)
  Sender: FDA-Public Use
  Company Number: JP-CHUGAI-2024007626

PATIENT
  Age: 74 Year
  Sex: Female
  Weight: 43.4 kg

DRUGS (5)
  1. ROZLYTREK [Suspect]
     Active Substance: ENTRECTINIB
     Indication: Dedifferentiated liposarcoma
     Route: 065
     Dates: start: 20220519, end: 20220608
  2. ROZLYTREK [Suspect]
     Active Substance: ENTRECTINIB
     Route: 065
     Dates: start: 20220616, end: 20220727
  3. ROZLYTREK [Suspect]
     Active Substance: ENTRECTINIB
     Route: 065
     Dates: start: 20220809, end: 20220907
  4. ROZLYTREK [Suspect]
     Active Substance: ENTRECTINIB
     Route: 065
     Dates: start: 20220922, end: 20221109
  5. ROZLYTREK [Suspect]
     Active Substance: ENTRECTINIB
     Route: 065
     Dates: start: 20221117, end: 20221221

REACTIONS (5)
  - Diarrhoea [Recovered/Resolved]
  - Blood creatine phosphokinase increased [Recovered/Resolved]
  - Fatigue [Recovered/Resolved]
  - Balance disorder [Recovered/Resolved]
  - Hypotension [Recovered/Resolved]

NARRATIVE: CASE EVENT DATE: 20220602
